FAERS Safety Report 21854760 (Version 3)
Quarter: 2023Q1

REPORT INFORMATION
  Report Type: Report from Study
  Country: US (occurrence: US)
  Receive Date: 20230112
  Receipt Date: 20230217
  Transmission Date: 20230417
  Serious: Yes (Death)
  Sender: FDA-Public Use
  Company Number: US-OTSUKA-2023_000645

PATIENT
  Sex: Female

DRUGS (6)
  1. DEXTROMETHORPHAN HYDROBROMIDE\QUINIDINE SULFATE [Suspect]
     Active Substance: DEXTROMETHORPHAN HYDROBROMIDE\QUINIDINE SULFATE
     Indication: Dementia
     Dosage: 1 DF, BID (EVERY 12 HOURS)
     Route: 065
     Dates: start: 20211120, end: 20220520
  2. DEXTROMETHORPHAN HYDROBROMIDE\QUINIDINE SULFATE [Suspect]
     Active Substance: DEXTROMETHORPHAN HYDROBROMIDE\QUINIDINE SULFATE
     Indication: Affect lability
  3. DEPAKOTE [Concomitant]
     Active Substance: DIVALPROEX SODIUM
     Indication: Dementia
     Dosage: 375 MG, QD
     Route: 065
     Dates: start: 20211022, end: 20220821
  4. TRAZODONE [Concomitant]
     Active Substance: TRAZODONE HYDROCHLORIDE
     Indication: Dementia
     Dosage: 37.5 MG, QD
     Route: 065
     Dates: start: 20211203, end: 20220819
  5. ZOLOFT [Concomitant]
     Active Substance: SERTRALINE HYDROCHLORIDE
     Indication: Major depression
     Dosage: 50 MG, QD
     Route: 065
     Dates: start: 20211203, end: 20220819
  6. DONEPEZIL [Concomitant]
     Active Substance: DONEPEZIL
     Indication: Dementia Alzheimer^s type
     Dosage: 10 MG, QD
     Route: 065
     Dates: start: 20210710, end: 20220520

REACTIONS (1)
  - Dementia Alzheimer^s type [Fatal]
